FAERS Safety Report 7941941-8 (Version None)
Quarter: 2011Q4

REPORT INFORMATION
  Report Type: 
  Country: None (occurrence: None)
  Receive Date: 20111114
  Receipt Date: 20110603
  Transmission Date: 20120403
  Serious: Yes (Other)
  Sender: FDA-Public Use
  Company Number: 2011028801

PATIENT
  Sex: Female
  Weight: 19.9583 kg

DRUGS (2)
  1. HIZENTRA [Suspect]
     Dosage: (2 G 1X/WEEK, 2 G (15 ML) OVER 1.5 HOURS SUBCUTANEOUS), (SUBCUTANEOUS), (SUBCUTANEOUS)
     Route: 058
     Dates: start: 20110509, end: 20110523
  2. HIZENTRA [Suspect]
     Indication: HYPOGAMMAGLOBULINAEMIA

REACTIONS (2)
  - INFUSION SITE INFLAMMATION [None]
  - PAIN [None]
